FAERS Safety Report 4650466-7 (Version None)
Quarter: 2005Q2

REPORT INFORMATION
  Report Type: 
  Country: None (occurrence: None)
  Receive Date: 20050429
  Receipt Date: 20050420
  Transmission Date: 20051028
  Serious: Yes (Death, Other)
  Sender: FDA-Public Use
  Company Number: 2005-04-1439

PATIENT
  Age: 35 Year
  Sex: Male

DRUGS (1)
  1. INTRON A [Suspect]
     Indication: MYCOSIS FUNGOIDES
     Dosage: 3-5 MIU 3XWK

REACTIONS (4)
  - ACUTE FEBRILE NEUTROPHILIC DERMATOSIS [None]
  - GENERAL PHYSICAL HEALTH DETERIORATION [None]
  - HIDRADENITIS [None]
  - RESPIRATORY FAILURE [None]
